FAERS Safety Report 13900826 (Version 1)
Quarter: 2017Q3

REPORT INFORMATION
  Report Type: Report from Study
  Country: ES (occurrence: ES)
  Receive Date: 20170824
  Receipt Date: 20170824
  Transmission Date: 20171127
  Serious: Yes (Other)
  Sender: FDA-Public Use
  Company Number: ES-CONCORDIA PHARMACEUTICALS INC.-GSH201708-004798

PATIENT

DRUGS (2)
  1. DIGOXIN. [Suspect]
     Active Substance: DIGOXIN
     Indication: TACHYCARDIA FOETAL
     Dosage: MATERNAL DOSE: LOADING DOSE 1.25 MG IV, MAINTENANCE DOSE: 0.75 MG/DAY FOR 17 DAYS
     Route: 064
  2. SOTALOL. [Suspect]
     Active Substance: SOTALOL
     Indication: TACHYCARDIA FOETAL
     Dosage: MATERNAL DOSE: FIRST-DAY DOSING WAS 40 MG/12 H ORALLY AND THEREAFTER 80 MG/12 H
     Route: 064

REACTIONS (3)
  - Supraventricular tachycardia [Not Recovered/Not Resolved]
  - Foetal exposure during pregnancy [Unknown]
  - Drug ineffective [Unknown]
